FAERS Safety Report 8549823-8 (Version None)
Quarter: 2012Q3

REPORT INFORMATION
  Report Type: 
  Country: None (occurrence: None)
  Receive Date: 20120720
  Receipt Date: 20120720
  Transmission Date: 20120928
  Serious: Yes (Hospitalization)
  Sender: FDA-Public Use
  Company Number: None

PATIENT
  Age: 67 Year
  Sex: Male
  Weight: 65.4 kg

DRUGS (1)
  1. ATENOLOL AND CHLORTHALIDONE [Suspect]
     Indication: HYPERTENSION
     Dosage: 1 TAB EVERY DAY PO
     Route: 048
     Dates: start: 20120508, end: 20120717

REACTIONS (3)
  - HYPONATRAEMIA [None]
  - HYPOKALAEMIA [None]
  - HYPOCHLORAEMIA [None]
